FAERS Safety Report 9585840 (Version 1)
Quarter: 2013Q4

REPORT INFORMATION
  Report Type: Spontaneous
  Country: US (occurrence: None)
  Receive Date: 20131002
  Receipt Date: 20131002
  Transmission Date: 20140711
  Serious: Yes (Other)
  Sender: FDA-Public Use
  Company Number: None

PATIENT
  Age: 60 Year
  Sex: Female
  Weight: 55 kg

DRUGS (10)
  1. PEGASYS [Suspect]
     Indication: CHRONIC HEPATITIS C
     Route: 058
     Dates: start: 20130517, end: 20130913
  2. RIBAPAK [Suspect]
     Indication: CHRONIC HEPATITIS C
     Route: 048
     Dates: start: 20130517, end: 20130913
  3. RIBAVIRIN [Concomitant]
  4. LEVOTHYROXINE [Concomitant]
  5. MAGNESIUM OXIDE [Concomitant]
  6. ZINC [Concomitant]
  7. ZYRTEC [Concomitant]
  8. CALCIUM+D [Concomitant]
  9. SPIRONOLACTONE [Concomitant]
  10. FUROSEMIDE [Concomitant]

REACTIONS (3)
  - Ascites [None]
  - Hepatic lesion [None]
  - Hepatocellular carcinoma [None]
